FAERS Safety Report 11791979 (Version 3)
Quarter: 2016Q1

REPORT INFORMATION
  Report Type: Report from Study
  Country: US (occurrence: US)
  Receive Date: 20151201
  Receipt Date: 20160318
  Transmission Date: 20160525
  Serious: Yes (Hospitalization, Other)
  Sender: FDA-Public Use
  Company Number: US-ARIAD-2015US005792

PATIENT
  Sex: Female

DRUGS (1)
  1. ICLUSIG [Suspect]
     Active Substance: PONATINIB
     Indication: CHRONIC MYELOID LEUKAEMIA
     Dosage: 45 MG, QD
     Route: 048
     Dates: start: 20150707

REACTIONS (6)
  - Cellulitis [Unknown]
  - Dyspnoea [Unknown]
  - Pulmonary embolism [Unknown]
  - Decreased appetite [Unknown]
  - Thrombosis [Unknown]
  - Skin exfoliation [Unknown]
